FAERS Safety Report 4607353-X (Version None)
Quarter: 2005Q1

REPORT INFORMATION
  Report Type: 
  Country: None (occurrence: None)
  Receive Date: 20050310
  Receipt Date: 20050222
  Transmission Date: 20050727
  Serious: Yes (Hospitalization)
  Sender: FDA-Public Use
  Company Number: 200500384

PATIENT
  Age: 76 Year
  Sex: Female

DRUGS (12)
  1. LUMIGAN  0.03% [Suspect]
     Indication: GLAUCOMA
  2. ALPHAGAN [Suspect]
     Indication: GLAUCOMA
  3. COSOPT [Suspect]
     Indication: GLAUCOMA
  4. ANAFRANIL [Suspect]
     Indication: ANXIETY
     Dosage: 10 MG QPM PO; A FEW YEARS
     Route: 048
  5. LEVAXIN [Concomitant]
  6. DIAMOX [Concomitant]
  7. ATENOLOL [Concomitant]
  8. XALATAN [Concomitant]
  9. PLENDIL [Concomitant]
  10. OESTRIOL ^NM PHARMA^ [Concomitant]
  11. RABEPRAZOLE SODIUM [Concomitant]
  12. TIMOSAN [Concomitant]

REACTIONS (8)
  - ATRIAL FIBRILLATION [None]
  - CARDIAC FLUTTER [None]
  - DRUG INTERACTION [None]
  - DYSPNOEA [None]
  - EXTRASYSTOLES [None]
  - GLAUCOMA [None]
  - HEART RATE IRREGULAR [None]
  - PALPITATIONS [None]
